FAERS Safety Report 12381597 (Version 2)
Quarter: 2016Q2

REPORT INFORMATION
  Report Type: Spontaneous
  Country: US (occurrence: US)
  Receive Date: 20160518
  Receipt Date: 20160525
  Transmission Date: 20160815
  Serious: No
  Sender: FDA-Public Use
  Company Number: US-BAYER-2016-095329

PATIENT
  Sex: Female

DRUGS (1)
  1. ALEVE [Suspect]
     Active Substance: NAPROXEN SODIUM
     Indication: MIGRAINE
     Dosage: 3 DF, BID
     Dates: start: 20160515

REACTIONS (3)
  - Product use issue [None]
  - Product use issue [None]
  - Overdose [None]

NARRATIVE: CASE EVENT DATE: 20160515
